FAERS Safety Report 10584124 (Version 1)
Quarter: 2014Q4

REPORT INFORMATION
  Report Type: Spontaneous
  Country: US (occurrence: US)
  Receive Date: 20141114
  Receipt Date: 20141114
  Transmission Date: 20150529
  Serious: Yes (Death, Hospitalization)
  Sender: FDA-Public Use
  Company Number: US-PFIZER INC-2014310206

PATIENT
  Age: 72 Year
  Sex: Male
  Weight: 54 kg

DRUGS (4)
  1. SUTENT [Suspect]
     Active Substance: SUNITINIB MALATE
     Indication: RENAL CELL CARCINOMA
     Dosage: 50 MG, UNK
     Route: 048
     Dates: start: 2014, end: 201409
  2. LIPITOR [Concomitant]
     Active Substance: ATORVASTATIN CALCIUM
  3. MS CONTIN [Concomitant]
     Active Substance: MORPHINE SULFATE
  4. PERCOCET 10 [Concomitant]
     Indication: PAIN

REACTIONS (4)
  - Decreased appetite [Unknown]
  - Disease progression [Fatal]
  - Gait disturbance [Unknown]
  - Metastatic renal cell carcinoma [Fatal]

NARRATIVE: CASE EVENT DATE: 2014
